FAERS Safety Report 23476799 (Version 1)
Quarter: 2024Q1

REPORT INFORMATION
  Report Type: Report from Study
  Country: US (occurrence: US)
  Receive Date: 20240204
  Receipt Date: 20240204
  Transmission Date: 20240410
  Serious: No
  Sender: FDA-Public Use
  Company Number: US-EXELIXIS-CABO-23064346

PATIENT
  Age: 61 Year
  Sex: Female

DRUGS (4)
  1. CABOMETYX [Suspect]
     Active Substance: CABOZANTINIB S-MALATE
     Indication: Renal cancer
     Dosage: 40 MG, QD
     Route: 048
     Dates: start: 20230515
  2. CABOMETYX [Suspect]
     Active Substance: CABOZANTINIB S-MALATE
     Dosage: 20 MG, QD
     Route: 048
     Dates: start: 20230708
  3. DEXAMETHASONE [Suspect]
     Active Substance: DEXAMETHASONE
     Indication: Stomatitis
     Dosage: UNK
  4. ALUMINUM HYDROXIDE\DIMETHICONE\DIPHENHYDRAMINE\LIDOCAINE\MAGNESIUM HYD [Suspect]
     Active Substance: ALUMINUM HYDROXIDE\DIMETHICONE\DIPHENHYDRAMINE\LIDOCAINE\MAGNESIUM HYDROXIDE
     Indication: Stomatitis
     Dosage: UNK

REACTIONS (16)
  - Myalgia [Unknown]
  - Nail pigmentation [Unknown]
  - Skin fissures [Unknown]
  - Blood thyroid stimulating hormone abnormal [Unknown]
  - Blood magnesium decreased [Unknown]
  - Alopecia [Unknown]
  - Decreased appetite [Unknown]
  - Diarrhoea [Unknown]
  - Fatigue [Unknown]
  - Stomatitis [Unknown]
  - Taste disorder [Unknown]
  - Pain in extremity [Unknown]
  - Dry skin [Unknown]
  - Adverse event [Unknown]
  - Dysphonia [Unknown]
  - Nausea [Unknown]

NARRATIVE: CASE EVENT DATE: 20230530
